FAERS Safety Report 5597751-2 (Version None)
Quarter: 2007Q4

REPORT INFORMATION
  Report Type: 
  Country: None (occurrence: None)
  Receive Date: 20071221
  Receipt Date: 20070823
  Transmission Date: 20080405
  Serious: No
  Sender: FDA-Public Use
  Company Number: US-CVT-070151

PATIENT
  Sex: Female

DRUGS (3)
  1. RANEXA [Suspect]
     Dosage: 500 MG, BID, ORAL
     Route: 048
     Dates: start: 20070821
  2. LEVAQUIN [Suspect]
     Indication: SEPSIS
     Dates: start: 20070801, end: 20070801
  3. FUROSEMIDE /00032601/ (FUROSEMIDE) [Concomitant]

REACTIONS (1)
  - DELIRIUM [None]
